FAERS Safety Report 5883240-4 (Version None)
Quarter: 2008Q3

REPORT INFORMATION
  Report Type: 
  Country: None (occurrence: None)
  Receive Date: 20080915
  Receipt Date: 20080909
  Transmission Date: 20090109
  Serious: Yes (Other)
  Sender: FDA-Public Use
  Company Number: JP-JNJFOC-20080902443

PATIENT
  Sex: Female
  Weight: 44 kg

DRUGS (9)
  1. ITRACONAZOLE [Suspect]
     Indication: PNEUMONIA CRYPTOCOCCAL
     Route: 041
  2. BARACLUDE [Concomitant]
     Indication: HEPATITIS B
     Route: 048
  3. SLOW-K [Concomitant]
     Indication: HYPOKALAEMIA
     Route: 048
  4. GASTER D [Concomitant]
     Indication: GASTRITIS
     Route: 048
  5. ASPIRIN [Concomitant]
     Indication: ANGINA PECTORIS
     Route: 048
  6. PERAZOLIN [Concomitant]
     Indication: LEUKAEMIA
     Dosage: STRENGTH IS FINE GRAIN
     Route: 048
  7. VEPESID [Concomitant]
     Indication: LEUKAEMIA
     Route: 048
  8. PREDNISOLONE [Concomitant]
     Indication: LEUKAEMIA
     Route: 048
  9. VALTREX [Concomitant]
     Indication: GENITAL HERPES
     Route: 048

REACTIONS (1)
  - HYPERGLYCAEMIA [None]
